FAERS Safety Report 7400136-7 (Version None)
Quarter: 2011Q2

REPORT INFORMATION
  Report Type: 
  Country: None (occurrence: None)
  Receive Date: 20110407
  Receipt Date: 20110329
  Transmission Date: 20111010
  Serious: Yes (Hospitalization)
  Sender: FDA-Public Use
  Company Number: DE-ASTRAZENECA-2011SE18008

PATIENT
  Age: 15998 Day
  Sex: Male
  Weight: 126 kg

DRUGS (3)
  1. BRILIQUE [Suspect]
     Indication: CORONARY ARTERY DISEASE
     Route: 048
     Dates: start: 20110224, end: 20110306
  2. BRILIQUE [Suspect]
     Indication: CORONARY ANGIOPLASTY
     Route: 048
     Dates: start: 20110224, end: 20110306
  3. PIPRIL [Concomitant]
     Indication: ANTIBIOTIC THERAPY
     Route: 065
     Dates: end: 20110301

REACTIONS (4)
  - DYSPNOEA [None]
  - LIVER FUNCTION TEST ABNORMAL [None]
  - RASH [None]
  - CONFUSIONAL STATE [None]
